FAERS Safety Report 13266214 (Version 2)
Quarter: 2017Q1

REPORT INFORMATION
  Report Type: Spontaneous
  Country: US (occurrence: US)
  Receive Date: 20170223
  Receipt Date: 20170310
  Transmission Date: 20170428
  Serious: No
  Sender: FDA-Public Use
  Company Number: US-009507513-1702USA010271

PATIENT
  Sex: Female

DRUGS (1)
  1. NEXPLANON [Suspect]
     Active Substance: ETONOGESTREL
     Dosage: 1 ROD, 3 YEARS
     Route: 059
     Dates: start: 20170222, end: 20170222

REACTIONS (3)
  - Product quality issue [Unknown]
  - Complication of device insertion [Unknown]
  - No adverse event [Unknown]

NARRATIVE: CASE EVENT DATE: 20170222
